FAERS Safety Report 23133816 (Version 1)
Quarter: 2023Q4

REPORT INFORMATION
  Report Type: Spontaneous
  Country: FR (occurrence: FR)
  Receive Date: 20231101
  Receipt Date: 20231101
  Transmission Date: 20240109
  Serious: Yes (Hospitalization)
  Sender: FDA-Public Use
  Company Number: FR-SANDOZ-SDZ2023FR048823

PATIENT
  Age: 83 Year
  Sex: Male
  Weight: 56 kg

DRUGS (5)
  1. BROMAZEPAM [Suspect]
     Active Substance: BROMAZEPAM
     Indication: Poisoning deliberate
     Dosage: 30 DF, X 30 DOSAGE FORM IN 1 TOTAL
     Route: 048
     Dates: start: 20230825, end: 20230825
  2. FLUOXETINE HYDROCHLORIDE [Suspect]
     Active Substance: FLUOXETINE HYDROCHLORIDE
     Indication: Poisoning deliberate
     Dosage: 56 DF, X 56 DOSAGE FORM IN 1 TOTAL
     Route: 048
     Dates: start: 20230825, end: 20230825
  3. ZOPICLONE [Suspect]
     Active Substance: ZOPICLONE
     Indication: Poisoning deliberate
     Dosage: 14 DF, 14 DOSAGE FORM IN 1 TOTAL
     Route: 048
     Dates: start: 20230825, end: 20230825
  4. Panotile [Concomitant]
     Indication: Product used for unknown indication
     Dosage: UNK
     Route: 065
  5. RISTABIL [Concomitant]
     Indication: Product used for unknown indication
     Dosage: UNK
     Route: 065

REACTIONS (4)
  - Coma [Recovered/Resolved]
  - Acute respiratory distress syndrome [Recovering/Resolving]
  - Pneumonia aspiration [Recovered/Resolved with Sequelae]
  - Toxicity to various agents [Unknown]

NARRATIVE: CASE EVENT DATE: 20230825
